FAERS Safety Report 18744858 (Version 1)
Quarter: 2021Q1

REPORT INFORMATION
  Report Type: Spontaneous
  Country: CN (occurrence: CN)
  Receive Date: 20210115
  Receipt Date: 20210115
  Transmission Date: 20210419
  Serious: Yes (Hospitalization, Other)
  Sender: FDA-Public Use
  Company Number: CN-009507513-2101CHN004233

PATIENT
  Age: 56 Year
  Sex: Male
  Weight: 70 kg

DRUGS (3)
  1. SODIUM CHLORIDE. [Concomitant]
     Active Substance: SODIUM CHLORIDE
     Indication: INFECTION
     Dosage: 200 ML, TID (ALSO REPORTED AS 8 HOURS)
     Route: 041
     Dates: start: 20201225, end: 20210101
  2. ZYVOX [Concomitant]
     Active Substance: LINEZOLID
     Indication: INFECTION
     Dosage: 0.6 G TWICE A DAY (BID) (ALSO REPORTED AS EVERY 12 HOURS)
     Route: 041
     Dates: start: 20201228, end: 20210101
  3. TIENAM [Suspect]
     Active Substance: CILASTATIN SODIUM\IMIPENEM
     Indication: INFECTION
     Dosage: 1 G THREE TIMES A DAY (TID)
     Route: 041
     Dates: start: 20201225, end: 20210101

REACTIONS (3)
  - Speech disorder [Recovered/Resolved]
  - Depression [Recovered/Resolved]
  - Epilepsy [Recovering/Resolving]

NARRATIVE: CASE EVENT DATE: 20201230
